FAERS Safety Report 7212926-4 (Version None)
Quarter: 2011Q1

REPORT INFORMATION
  Report Type: 
  Country: None (occurrence: None)
  Receive Date: 20110106
  Receipt Date: 20101220
  Transmission Date: 20110831
  Serious: No
  Sender: FDA-Public Use
  Company Number: US-B.I. PHARMACEUTICALS,INC./RIDGEFIELD-2010-BP-15195BP

PATIENT
  Sex: Female

DRUGS (4)
  1. PRADAXA [Suspect]
     Indication: ATRIAL FIBRILLATION
     Dosage: 300 MG
     Route: 048
     Dates: start: 20101208
  2. PROTONIX [Concomitant]
     Indication: OESOPHAGEAL ULCER
  3. CYMBALTA [Concomitant]
     Indication: DEPRESSION
  4. COREG [Concomitant]
     Indication: HYPERTENSION

REACTIONS (2)
  - CONSTIPATION [None]
  - DRY MOUTH [None]
